FAERS Safety Report 7068138-0 (Version None)
Quarter: 2010Q4

REPORT INFORMATION
  Report Type: 
  Country: None (occurrence: None)
  Receive Date: 20101028
  Receipt Date: 20101019
  Transmission Date: 20110411
  Serious: Yes (Death, Other)
  Sender: FDA-Public Use
  Company Number: PHHY2010JP48944

PATIENT
  Sex: Male
  Weight: 62 kg

DRUGS (7)
  1. DIOVAN [Suspect]
     Indication: HYPERTENSION
     Dosage: 160 MG, QD
     Route: 048
     Dates: start: 20080618, end: 20100408
  2. CELECTOL [Concomitant]
     Indication: HYPERTENSION
     Dosage: 100 MG
     Route: 048
     Dates: start: 20080903, end: 20100408
  3. ADALAT CC [Concomitant]
     Indication: HYPERTENSION
     Dosage: 20 MG
     Route: 048
     Dates: start: 20080903, end: 20100408
  4. TAMSULOSIN HCL [Concomitant]
     Dosage: 0.2 MG
     Route: 048
     Dates: start: 20020704, end: 20100408
  5. HOCHUUEKKITOU [Concomitant]
     Dosage: 7.5 MG
     Route: 048
     Dates: start: 20020704, end: 20100408
  6. EURODIN [Concomitant]
     Dosage: 2 MG
     Route: 048
     Dates: start: 20050405, end: 20100408
  7. ROHYPNOL [Concomitant]
     Dosage: 1 MG
     Route: 048
     Dates: start: 20050405, end: 20100408

REACTIONS (2)
  - AORTIC DISSECTION [None]
  - BLOOD PRESSURE INCREASED [None]
